FAERS Safety Report 17435519 (Version 1)
Quarter: 2020Q1

REPORT INFORMATION
  Report Type: Spontaneous
  Country: US (occurrence: US)
  Receive Date: 20200204
  Receipt Date: 20200204
  Transmission Date: 20200409
  Serious: Yes (Hospitalization)
  Sender: FDA-Public Use
  Company Number: None

PATIENT
  Age: 60 Year

DRUGS (10)
  1. IPRATROPIUM [Concomitant]
     Active Substance: IPRATROPIUM
  2. MEGESTROL AC [Concomitant]
  3. PROMETHAZINE [Concomitant]
     Active Substance: PROMETHAZINE HYDROCHLORIDE
  4. ETOPOSIDE 50MG CAP (1) [Suspect]
     Active Substance: ETOPOSIDE
     Route: 048
     Dates: start: 20200128
  5. ETOPOSIDE 50MG CAP (3) [Suspect]
     Active Substance: ETOPOSIDE
     Route: 048
     Dates: start: 20200128
  6. ASPIRIN. [Concomitant]
     Active Substance: ASPIRIN
  7. AMIODARONE [Concomitant]
     Active Substance: AMIODARONE
  8. VIOS MIS SYSTEM [Concomitant]
  9. DILTIAZEM. [Concomitant]
     Active Substance: DILTIAZEM
  10. FUROSEMIDE. [Concomitant]
     Active Substance: FUROSEMIDE

REACTIONS (1)
  - Adverse drug reaction [None]

NARRATIVE: CASE EVENT DATE: 202001
